FAERS Safety Report 6296063-1 (Version None)
Quarter: 2009Q3

REPORT INFORMATION
  Report Type: 
  Country: None (occurrence: None)
  Receive Date: 20090804
  Receipt Date: 20090731
  Transmission Date: 20100115
  Serious: Yes (Life-Threatening)
  Sender: FDA-Public Use
  Company Number: RU-ASTRAZENECA-2009SE06426

PATIENT
  Age: 18178 Day
  Sex: Female
  Weight: 98 kg

DRUGS (2)
  1. FASLODEX [Suspect]
     Indication: BREAST CANCER
     Dosage: 250 MG/5ML ONE PER MONTH
     Route: 030
     Dates: start: 20070704
  2. FASLODEX [Suspect]
     Indication: METASTASES TO BONE
     Dosage: 250 MG/5ML ONE PER MONTH
     Route: 030
     Dates: start: 20070704

REACTIONS (4)
  - ASPHYXIA [None]
  - CHILLS [None]
  - COLD SWEAT [None]
  - DYSPNOEA [None]
